FAERS Safety Report 22320402 (Version 1)
Quarter: 2023Q2

REPORT INFORMATION
  Report Type: Spontaneous
  Country: US (occurrence: US)
  Receive Date: 20230515
  Receipt Date: 20230515
  Transmission Date: 20230722
  Serious: No
  Sender: FDA-Public Use
  Company Number: US-PFIZER INC-PV202300085259

PATIENT
  Age: 51 Year
  Sex: Female

DRUGS (3)
  1. INLYTA [Suspect]
     Active Substance: AXITINIB
     Dosage: 1 MG
  2. INLYTA [Suspect]
     Active Substance: AXITINIB
     Dosage: 5 MG
  3. INLYTA [Suspect]
     Active Substance: AXITINIB
     Dosage: 3 MG

REACTIONS (1)
  - Enzyme level increased [Not Recovered/Not Resolved]
